FAERS Safety Report 17119543 (Version 2)
Quarter: 2019Q4

REPORT INFORMATION
  Report Type: Spontaneous
  Country: BR (occurrence: BR)
  Receive Date: 20191206
  Receipt Date: 20191212
  Transmission Date: 20200122
  Serious: Yes (Other)
  Sender: FDA-Public Use
  Company Number: BR-EMD SERONO-9133394

PATIENT
  Sex: Female

DRUGS (2)
  1. GLIFAGE [Suspect]
     Active Substance: METFORMIN HYDROCHLORIDE
     Indication: BLOOD GLUCOSE ABNORMAL
     Dosage: TABLET DIMENSION: 9.5 MM (FOR OLD FORMAT). DOSE: 3 TO 4 TABLETS A DAY.
     Route: 048
  2. GLIFAGE [Suspect]
     Active Substance: METFORMIN HYDROCHLORIDE
     Dosage: TABLET DIMENSION: 12 MM (FOR NEW FORMAT)?DOSE: 3 TO 4 TABLETS A DAY
     Route: 048

REACTIONS (6)
  - Choking [Recovered/Resolved]
  - Wrong technique in product usage process [Unknown]
  - Pharyngeal haemorrhage [Recovered/Resolved]
  - Dysphonia [Not Recovered/Not Resolved]
  - Dysphagia [Unknown]
  - Product size issue [Unknown]
